FAERS Safety Report 7580159-8 (Version None)
Quarter: 2011Q2

REPORT INFORMATION
  Report Type: 
  Country: None (occurrence: None)
  Receive Date: 20110629
  Receipt Date: 20110616
  Transmission Date: 20111010
  Serious: Yes (Hospitalization, Other)
  Sender: FDA-Public Use
  Company Number: US-BAYER-201035481NA

PATIENT
  Age: 26 Year
  Sex: Female
  Weight: 61.224 kg

DRUGS (8)
  1. PLAQUENIL [Concomitant]
     Indication: SYSTEMIC LUPUS ERYTHEMATOSUS
     Dosage: UNK
     Dates: start: 20081101
  2. PRENATAL VITAMINS [VIT C,VIT H,MIN NOS,VIT PP,RETINOL,VIT E,VIT B NOS, [Concomitant]
  3. DOCUSATE SODIUM [Concomitant]
     Dosage: 100 MG, UNK
     Dates: start: 20070123
  4. YAZ [Suspect]
     Indication: PRODUCT USED FOR UNKNOWN INDICATION
     Route: 048
     Dates: start: 20070301, end: 20081101
  5. KEFLEX [Concomitant]
     Dosage: 500 MG, TID
  6. IBUPROFEN [Concomitant]
     Dosage: 800 MG, UNK
     Dates: start: 20070123
  7. PREDNISONE [Concomitant]
     Dosage: UNK
     Dates: start: 20081202
  8. PROPOXYPHENE HCL AND ACETAMINOPHEN [Concomitant]
     Dosage: UNK
     Dates: start: 20070123

REACTIONS (4)
  - DEEP VEIN THROMBOSIS [None]
  - PAIN IN EXTREMITY [None]
  - OEDEMA PERIPHERAL [None]
  - VENOUS INJURY [None]
